FAERS Safety Report 5796829-8 (Version None)
Quarter: 2008Q3

REPORT INFORMATION
  Report Type: 
  Country: None (occurrence: None)
  Receive Date: 20080701
  Receipt Date: 20080617
  Transmission Date: 20090109
  Serious: Yes (Hospitalization)
  Sender: FDA-Public Use
  Company Number: JP-NOVOPROD-276813

PATIENT
  Sex: Female

DRUGS (2)
  1. NOVONORM 0.5 MG [Suspect]
     Indication: TYPE 2 DIABETES MELLITUS
     Route: 048
     Dates: start: 20080414, end: 20080617
  2. PLACEBO TABLET [Suspect]
     Dates: start: 20080414, end: 20080617

REACTIONS (1)
  - CEREBRAL INFARCTION [None]
